FAERS Safety Report 18468549 (Version 1)
Quarter: 2020Q4

REPORT INFORMATION
  Report Type: Spontaneous
  Country: US (occurrence: US)
  Receive Date: 20201105
  Receipt Date: 20201105
  Transmission Date: 20210114
  Serious: No
  Sender: FDA-Public Use
  Company Number: US-GILEAD-2020-0502834

PATIENT
  Age: 63 Year
  Sex: Female
  Weight: 99 kg

DRUGS (1)
  1. VEKLURY [Suspect]
     Active Substance: REMDESIVIR
     Indication: COVID-19
     Dosage: UNK
     Route: 065
     Dates: start: 20201031

REACTIONS (1)
  - Oxygen consumption increased [Recovering/Resolving]

NARRATIVE: CASE EVENT DATE: 20201031
